FAERS Safety Report 6965195-4 (Version None)
Quarter: 2010Q3

REPORT INFORMATION
  Report Type: 
  Country: None (occurrence: None)
  Receive Date: 20100903
  Receipt Date: 20100830
  Transmission Date: 20110219
  Serious: Yes (Other)
  Sender: FDA-Public Use
  Company Number: JP-BAYER-201014396BYL

PATIENT
  Age: 60 Year
  Sex: Female

DRUGS (2)
  1. ASPIRIN [Suspect]
     Indication: PRODUCT USED FOR UNKNOWN INDICATION
     Route: 048
     Dates: start: 20091001, end: 20091101
  2. UNKNOWN DRUG [Concomitant]

REACTIONS (1)
  - ERYTHEMA MULTIFORME [None]
